FAERS Safety Report 14380793 (Version 1)
Quarter: 2018Q1

REPORT INFORMATION
  Report Type: Report from Study
  Country: US (occurrence: US)
  Receive Date: 20180112
  Receipt Date: 20180112
  Transmission Date: 20180509
  Serious: Yes (Death)
  Sender: FDA-Public Use
  Company Number: US-BAYER-2017-232213

PATIENT
  Age: 83 Year
  Sex: Male
  Weight: 70.3 kg

DRUGS (3)
  1. ADEMPAS [Suspect]
     Active Substance: RIOCIGUAT
     Indication: PULMONARY ARTERIAL HYPERTENSION
     Dosage: UNK
     Dates: start: 20170607
  2. APIXABAN [Concomitant]
     Active Substance: APIXABAN
     Dosage: UNK
  3. ADEMPAS [Suspect]
     Active Substance: RIOCIGUAT
     Indication: PULMONARY ARTERIAL HYPERTENSION
     Dosage: 1.5 MG, TID
     Route: 048

REACTIONS (8)
  - Fatigue [None]
  - Obstructive airways disorder [None]
  - Death [Fatal]
  - Upper-airway cough syndrome [None]
  - Tremor [None]
  - Dyspnoea [Unknown]
  - Cough [Recovering/Resolving]
  - Dysphagia [None]

NARRATIVE: CASE EVENT DATE: 201711
